FAERS Safety Report 10572813 (Version 1)
Quarter: 2014Q4

REPORT INFORMATION
  Report Type: Spontaneous
  Country: US (occurrence: None)
  Receive Date: 20141107
  Receipt Date: 20141107
  Transmission Date: 20150529
  Serious: No
  Sender: FDA-Public Use
  Company Number: None

PATIENT
  Age: 62 Year
  Sex: Female
  Weight: 71.67 kg

DRUGS (1)
  1. BUPROPION SR 150 MG ACTAVIS [Suspect]
     Active Substance: BUPROPION
     Indication: ANTIDEPRESSANT THERAPY
     Dosage: 1 TABLET TAKEN BY MOUTH
     Route: 048
     Dates: start: 20140101, end: 20140702

REACTIONS (1)
  - Drug ineffective [None]
